FAERS Safety Report 19453211 (Version 6)
Quarter: 2021Q4

REPORT INFORMATION
  Report Type: Spontaneous
  Country: IT (occurrence: IT)
  Receive Date: 20210623
  Receipt Date: 20211010
  Transmission Date: 20220303
  Serious: Yes (Hospitalization, Other)
  Sender: FDA-Public Use
  Company Number: NVSC2021IT133303

PATIENT
  Age: 63 Year
  Sex: Female

DRUGS (4)
  1. LANSOPRAZOLE [Suspect]
     Active Substance: LANSOPRAZOLE
     Indication: Product used for unknown indication
     Dosage: UNK
     Route: 065
  2. PREDNISONE [Suspect]
     Active Substance: PREDNISONE
     Indication: Product used for unknown indication
     Dosage: UNK
     Route: 065
  3. NIRAPARIB [Suspect]
     Active Substance: NIRAPARIB
     Indication: Ovarian cancer
     Dosage: 200 MG
     Route: 048
     Dates: start: 20210414, end: 20210514
  4. PREDNISONE [Suspect]
     Active Substance: PREDNISONE
     Indication: Product used for unknown indication
     Dosage: 5 MG, QD
     Route: 065

REACTIONS (6)
  - Red blood cell abnormality [Recovered/Resolved]
  - Neutrophil count abnormal [Recovered/Resolved]
  - Platelet count abnormal [Unknown]
  - Haemoglobin abnormal [Recovered/Resolved]
  - White blood cell count decreased [Recovered/Resolved]
  - Platelet count abnormal [Unknown]

NARRATIVE: CASE EVENT DATE: 20210510
